FAERS Safety Report 22526480 (Version 1)
Quarter: 2023Q2

REPORT INFORMATION
  Report Type: Spontaneous
  Country: GB (occurrence: GB)
  Receive Date: 20230606
  Receipt Date: 20230606
  Transmission Date: 20230722
  Serious: Yes (Hospitalization, Other)
  Sender: FDA-Public Use
  Company Number: None

PATIENT
  Age: 60 Year

DRUGS (6)
  1. DOXORUBICIN [Suspect]
     Active Substance: DOXORUBICIN
     Dosage: 100MG/50ML (50MGM2=}110MG (DOSE-BANDED))
  2. SODIUM CHLORIDE [Suspect]
     Active Substance: SODIUM CHLORIDE
     Dosage: 1000MG/250ML
  3. CYCLOPHOSPHAMIDE [Suspect]
     Active Substance: CYCLOPHOSPHAMIDE
     Dosage: 1000MG/250ML (CYCLOPHOSPHAMIDE IV 750MG/M2=}1800MG (DOSE-BANDED))
     Route: 039
  4. POLATUZUMAB VEDOTIN [Suspect]
     Active Substance: POLATUZUMAB VEDOTIN
     Dosage: 220MG (1.8MG/KG=}220MG (DOSE-BANDED))
     Route: 042
  5. RITUXIMAB [Suspect]
     Active Substance: RITUXIMAB
     Dosage: 500MG/50ML (375MG/M2=}900MG (DOSE-BANDED))
     Route: 042
  6. PREDNISOLONE [Suspect]
     Active Substance: PREDNISOLONE
     Dosage: IN THE MORNING (90MG PER ORAL (PO) ONCE IN THE MORNING (OM) FOR 5 DAYS)
     Route: 048

REACTIONS (2)
  - Pancytopenia [Unknown]
  - Sepsis [Unknown]
